FAERS Safety Report 12249963 (Version 2)
Quarter: 2016Q2

REPORT INFORMATION
  Report Type: Spontaneous
  Country: US (occurrence: US)
  Receive Date: 20160408
  Receipt Date: 20160420
  Transmission Date: 20160815
  Serious: Yes (Other)
  Sender: FDA-Public Use
  Company Number: US-OTSUKA-2016_007534

PATIENT
  Age: 30 Year
  Sex: Male

DRUGS (2)
  1. VITAMIN D [Concomitant]
     Active Substance: CHOLECALCIFEROL
     Indication: PRODUCT USED FOR UNKNOWN INDICATION
     Dosage: 50000 IU, QW
     Route: 065
  2. REXULTI [Suspect]
     Active Substance: BREXPIPRAZOLE
     Indication: SCHIZOPHRENIA
     Dosage: 3 MG, QD
     Route: 065
     Dates: start: 20160222, end: 20160330

REACTIONS (6)
  - Neutrophil count decreased [Unknown]
  - Off label use [Unknown]
  - Platelet count decreased [Unknown]
  - White blood cell count decreased [Unknown]
  - Pancytopenia [Unknown]
  - Product use issue [Unknown]

NARRATIVE: CASE EVENT DATE: 20160222
